FAERS Safety Report 10179632 (Version 1)
Quarter: 2014Q2

REPORT INFORMATION
  Report Type: Spontaneous
  Country: US (occurrence: US)
  Receive Date: 20140519
  Receipt Date: 20140519
  Transmission Date: 20141212
  Serious: No
  Sender: FDA-Public Use
  Company Number: US-PFIZER INC-2014133780

PATIENT
  Age: 66 Year
  Sex: Male

DRUGS (3)
  1. NARDIL [Suspect]
     Dosage: UNK
  2. CYMBALTA [Suspect]
     Dosage: UNK
  3. EMSAM [Suspect]
     Dosage: UNK

REACTIONS (1)
  - Drug ineffective [Unknown]
